FAERS Safety Report 17856437 (Version 2)
Quarter: 2020Q3

REPORT INFORMATION
  Report Type: Spontaneous
  Country: DE (occurrence: DE)
  Receive Date: 20200603
  Receipt Date: 20200701
  Transmission Date: 20201103
  Serious: Yes (Other)
  Sender: FDA-Public Use
  Company Number: NVSC2020DE150188

PATIENT
  Sex: Female

DRUGS (2)
  1. AMINEURIN 10 MG [Suspect]
     Active Substance: AMITRIPTYLINE HYDROCHLORIDE
     Indication: PRODUCT USED FOR UNKNOWN INDICATION
     Dosage: 2 DF, STARTED SINCE 10 YEARS
     Route: 065
  2. AMINEURIN 10 MG [Suspect]
     Active Substance: AMITRIPTYLINE HYDROCHLORIDE
     Dosage: UNK
     Route: 065
     Dates: start: 20200526

REACTIONS (2)
  - Drug ineffective [Unknown]
  - Glaucoma [Unknown]
